FAERS Safety Report 8271332-4 (Version None)
Quarter: 2012Q2

REPORT INFORMATION
  Report Type: 
  Country: None (occurrence: None)
  Receive Date: 20120410
  Receipt Date: 20120402
  Transmission Date: 20120825
  Serious: Yes (Hospitalization)
  Sender: FDA-Public Use
  Company Number: US-BAYER-2011-073345

PATIENT
  Age: 32 Year
  Sex: Female
  Weight: 126.98 kg

DRUGS (19)
  1. YASMIN [Suspect]
     Dosage: UNK
  2. EXFORGE [Concomitant]
     Indication: HYPERTENSION
     Dosage: 10/320 MG, QD
     Dates: start: 20080101, end: 20110101
  3. SYNTHROID [Concomitant]
  4. SINGULAIR [Concomitant]
     Indication: MULTIPLE ALLERGIES
     Dosage: UNK
     Dates: start: 20060101
  5. ZYRTEC [Concomitant]
     Indication: MULTIPLE ALLERGIES
     Dosage: 10 MG, QD
     Dates: start: 20060101
  6. PHENERGAN HCL [Concomitant]
     Dosage: 25 MG, EVERY 6 HOURS
  7. DROSPIRENONE AND ETHINYL ESTRADIOL [Suspect]
     Indication: CONTRACEPTION
  8. YAZ [Suspect]
     Indication: ENDOMETRIOSIS
  9. FLONASE [Concomitant]
     Dosage: UNK UNK, QD
  10. ACTIGALL [Concomitant]
     Dosage: 300 MG, BID
  11. IBUPROFEN [Concomitant]
     Dosage: UNK UNK, PRN
  12. YAZ [Suspect]
     Indication: CONTRACEPTION
  13. DIOVAN [Concomitant]
     Dosage: UNK
     Dates: start: 20070101
  14. CIPROFLOXACIN HCL [Concomitant]
     Dosage: 500 MG, BID
  15. LISINOPRIL [Concomitant]
     Indication: HYPERTENSION
     Dosage: 40 MG, QD
     Dates: start: 20080101
  16. NEXIUM [Concomitant]
     Indication: GASTROOESOPHAGEAL REFLUX DISEASE
     Dosage: 40 MG, BID
     Dates: start: 20060101
  17. LORTAB [Concomitant]
     Dosage: 7.5 MG, EVERY 6 HOURS PRN
  18. DROSPIRENONE AND ETHINYL ESTRADIOL [Suspect]
     Indication: ENDOMETRIOSIS
  19. INHALER [Concomitant]
     Dosage: UNK UNK, PRN

REACTIONS (9)
  - CHOLECYSTITIS CHRONIC [None]
  - ANHEDONIA [None]
  - PAIN [None]
  - ANXIETY [None]
  - GENERAL PHYSICAL HEALTH DETERIORATION [None]
  - ABDOMINAL PAIN [None]
  - GALLBLADDER DISORDER [None]
  - EMOTIONAL DISTRESS [None]
  - INJURY [None]
